FAERS Safety Report 6411619-0 (Version None)
Quarter: 2009Q4

REPORT INFORMATION
  Report Type: 
  Country: None (occurrence: None)
  Receive Date: 20091020
  Receipt Date: 20091012
  Transmission Date: 20100525
  Serious: Yes (Hospitalization, Congenital Anomaly)
  Sender: FDA-Public Use
  Company Number: 231749J09USA

PATIENT
  Age: 1 Month
  Sex: Male

DRUGS (1)
  1. REBIF [Suspect]
     Indication: MULTIPLE SCLEROSIS

REACTIONS (5)
  - CARDIAC SEPTAL DEFECT [None]
  - CONGENITAL HEART VALVE DISORDER [None]
  - DYSPNOEA [None]
  - OXYGEN SATURATION ABNORMAL [None]
  - PATERNAL DRUGS AFFECTING FOETUS [None]
